FAERS Safety Report 18566574 (Version 1)
Quarter: 2020Q4

REPORT INFORMATION
  Report Type: Spontaneous
  Country: DE (occurrence: DE)
  Receive Date: 20201201
  Receipt Date: 20201201
  Transmission Date: 20210114
  Serious: Yes (Hospitalization, Other)
  Sender: FDA-Public Use
  Company Number: DE-TEVA-2020-DE-1851971

PATIENT
  Age: 52 Year
  Sex: Female
  Weight: 73 kg

DRUGS (7)
  1. METHOTREXAT [Suspect]
     Active Substance: METHOTREXATE
     Route: 065
  2. PANTOPRAZOL [Concomitant]
     Active Substance: PANTOPRAZOLE SODIUM
     Dosage: 20 MILLIGRAM DAILY;  0-0-1-0
  3. HYDROXYCHLOROQUIN [Concomitant]
     Active Substance: HYDROXYCHLOROQUINE SULFATE
     Dosage: 400 MILLIGRAM DAILY; , 1-0-1-0
  4. METHYLPREDNISOLON [Concomitant]
     Active Substance: METHYLPREDNISOLONE
     Dosage: 6 MILLIGRAM DAILY; 1-0-0-0
  5. AMLODIPIN [Concomitant]
     Active Substance: AMLODIPINE BESYLATE
     Dosage: 10 MILLIGRAM DAILY;  1-0-1-0
  6. TILIDIN/NALOXON [Concomitant]
     Active Substance: NALOXONE HYDROCHLORIDE\TILIDINE HYDROCHLORIDE
     Dosage: 1 DOSAGE FORMS DAILY; 4|50 MG, 1-0-0-0
  7. METAMIZOL [Concomitant]
     Active Substance: METAMIZOLE SODIUM
     Dosage: 00 MG, 6X

REACTIONS (3)
  - Deep vein thrombosis [Unknown]
  - Thrombosis [Unknown]
  - Musculoskeletal pain [Unknown]
